FAERS Safety Report 7639431-5 (Version None)
Quarter: 2011Q3

REPORT INFORMATION
  Report Type: 
  Country: None (occurrence: None)
  Receive Date: 20110727
  Receipt Date: 20110708
  Transmission Date: 20111222
  Serious: Yes (Hospitalization)
  Sender: FDA-Public Use
  Company Number: US-GLAXOSMITHKLINE-A0868761A

PATIENT
  Age: 60 Year
  Sex: Male
  Weight: 102.3 kg

DRUGS (13)
  1. LISINOPRIL [Concomitant]
  2. LISINOPRIL [Concomitant]
  3. LAMOTRIGINE [Concomitant]
  4. VARDENAFIL HYDROCHLORIDE (LEVITRA) [Concomitant]
  5. AMLODIPINE BESYLATE [Concomitant]
  6. CLONAZEPAM [Concomitant]
  7. SIMVASTATIN [Concomitant]
  8. AVANDIA [Suspect]
     Indication: DIABETES MELLITUS
     Dosage: 4MG PER DAY
     Route: 048
     Dates: start: 20010101, end: 20080101
  9. HYTRIN [Concomitant]
  10. FLUOXETINE [Concomitant]
  11. OMEPRAZOLE [Concomitant]
  12. ANTI-CHOLESTEROL MEDICATION [Concomitant]
  13. ACTOS [Concomitant]

REACTIONS (2)
  - CEREBROVASCULAR ACCIDENT [None]
  - CARDIAC FAILURE CHRONIC [None]
